FAERS Safety Report 10203735 (Version 1)
Quarter: 2014Q2

REPORT INFORMATION
  Report Type: Spontaneous
  Country: US (occurrence: None)
  Receive Date: 20140523
  Receipt Date: 20140523
  Transmission Date: 20141212
  Serious: Yes (Other)
  Sender: FDA-Public Use
  Company Number: 2014P1004274

PATIENT
  Sex: 0

DRUGS (1)
  1. TROKENDI XR [Suspect]

REACTIONS (3)
  - Anxiety [None]
  - Hallucination [None]
  - Product substitution issue [None]
